FAERS Safety Report 4883635-1 (Version None)
Quarter: 2006Q1

REPORT INFORMATION
  Report Type: 
  Country: None (occurrence: None)
  Receive Date: 20060118
  Receipt Date: 20060109
  Transmission Date: 20060701
  Serious: Yes (Hospitalization)
  Sender: FDA-Public Use
  Company Number: 2006CG00065

PATIENT
  Age: 79 Year
  Sex: Female

DRUGS (7)
  1. ATACAND [Suspect]
     Indication: ESSENTIAL HYPERTENSION
     Route: 048
     Dates: start: 20010601, end: 20041115
  2. LIPANTHYL [Suspect]
     Indication: HYPERCHOLESTEROLAEMIA
     Route: 048
     Dates: start: 20000601, end: 20051125
  3. VEINAMITOL [Suspect]
     Indication: VARICOSE VEIN
     Route: 048
     Dates: end: 20051129
  4. KARDEGIC [Suspect]
     Route: 048
  5. DIAMICRON [Suspect]
     Indication: DIABETES MELLITUS
     Route: 048
     Dates: start: 20010601, end: 20041115
  6. AVANDIA [Concomitant]
     Dates: start: 20041101
  7. COVERSYL [Concomitant]
     Dates: start: 20041101

REACTIONS (3)
  - ECZEMA [None]
  - LICHENOID KERATOSIS [None]
  - LYMPHOEDEMA [None]
